FAERS Safety Report 6304218-2 (Version None)
Quarter: 2009Q3

REPORT INFORMATION
  Report Type: 
  Country: None (occurrence: None)
  Receive Date: 20090811
  Receipt Date: 20090730
  Transmission Date: 20100115
  Serious: Yes (Other)
  Sender: FDA-Public Use
  Company Number: FR-RANBAXY-2009RR-26036

PATIENT
  Age: 75 Year
  Sex: Female

DRUGS (2)
  1. VERAPAMIL [Suspect]
  2. FLUTICASONE [Suspect]
     Route: 055

REACTIONS (2)
  - ADRENAL INSUFFICIENCY [None]
  - DRUG INTERACTION [None]
